FAERS Safety Report 11864263 (Version 1)
Quarter: 2015Q4

REPORT INFORMATION
  Report Type: Spontaneous
  Country: FR (occurrence: FR)
  Receive Date: 20151223
  Receipt Date: 20151223
  Transmission Date: 20160305
  Serious: Yes (Hospitalization)
  Sender: FDA-Public Use
  Company Number: FR-PFIZER INC-2015454607

PATIENT
  Age: 23 Year
  Sex: Male

DRUGS (5)
  1. ATARAX [Suspect]
     Active Substance: HYDROXYZINE\HYDROXYZINE HYDROCHLORIDE
     Dosage: 14 DF, SINGLE
     Route: 048
     Dates: start: 20151123, end: 20151123
  2. PARACETAMOL [Suspect]
     Active Substance: ACETAMINOPHEN
     Dosage: 3000 MG (500 MG, 6 TABLETS ), SINGLE
     Route: 048
     Dates: start: 20151123, end: 20151123
  3. VENTOLINE /00139502/ [Concomitant]
     Dosage: UNK
  4. AMLOR [Suspect]
     Active Substance: AMLODIPINE BESYLATE
     Dosage: 150 MG (30 DF), SINGLE
     Route: 048
     Dates: start: 20151123, end: 20151123
  5. LYSANXIA [Suspect]
     Active Substance: PRAZEPAM
     Dosage: 400 MG (40 DF), SINGLE
     Route: 048
     Dates: start: 20151123, end: 20151123

REACTIONS (5)
  - Somnolence [Recovered/Resolved]
  - Confusional state [Recovered/Resolved]
  - Overdose [Recovered/Resolved]
  - Agitation [Recovered/Resolved]
  - Vomiting [Recovered/Resolved]

NARRATIVE: CASE EVENT DATE: 20151123
